FAERS Safety Report 5300437-2 (Version None)
Quarter: 2007Q2

REPORT INFORMATION
  Report Type: 
  Country: None (occurrence: None)
  Receive Date: 20070412
  Receipt Date: 20070405
  Transmission Date: 20071010
  Serious: Yes (Hospitalization)
  Sender: FDA-Public Use
  Company Number: 232404K07USA

PATIENT
  Age: 52 Year
  Sex: Female

DRUGS (2)
  1. REBIF [Suspect]
     Indication: MULTIPLE SCLEROSIS
     Dosage: 44 MCG, 3 IN 1 WEEKS, SUBCUTANEOUS
     Route: 058
     Dates: start: 20030819
  2. SOLU-MEDROL [Concomitant]

REACTIONS (5)
  - ELECTROCARDIOGRAM T WAVE INVERSION [None]
  - ILL-DEFINED DISORDER [None]
  - INJECTION SITE REACTION [None]
  - MIGRAINE [None]
  - URINARY TRACT INFECTION [None]
